FAERS Safety Report 9248623 (Version 3)
Quarter: 2013Q4

REPORT INFORMATION
  Report Type: Spontaneous
  Country: DE (occurrence: DE)
  Receive Date: 20130423
  Receipt Date: 20131011
  Transmission Date: 20140711
  Serious: Yes (Disabling)
  Sender: FDA-Public Use
  Company Number: DE-BAYER-2013-050501

PATIENT
  Age: 86 Year
  Sex: Male
  Weight: 90 kg

DRUGS (3)
  1. AVALOX [Suspect]
     Indication: BRONCHITIS
     Dosage: 1 DF, QD,
     Dates: start: 201304, end: 2013
  2. AVALOX [Suspect]
     Indication: BRONCHITIS
     Dosage: UNK
  3. PREDNISOLON [PREDNISOLONE] [Concomitant]
     Indication: BRONCHITIS
     Dosage: 1 DF, QD, 20 MG
     Dates: start: 201205

REACTIONS (2)
  - Anosmia [Recovered/Resolved]
  - Ageusia [Recovered/Resolved]
